FAERS Safety Report 9466859 (Version 2)
Quarter: 2013Q3

REPORT INFORMATION
  Report Type: Spontaneous
  Country: US (occurrence: None)
  Receive Date: 20130816
  Receipt Date: 20130911
  Transmission Date: 20140515
  Serious: Yes (Death, Hospitalization)
  Sender: FDA-Public Use
  Company Number: UTC-036389

PATIENT
  Age: 64 Year
  Sex: Female
  Weight: 45.5 kg

DRUGS (1)
  1. TYVASO [Suspect]
     Indication: PULMONARY ARTERIAL HYPERTENSION
     Dosage: 18 TO 54 MICROGRAMS (4 IN 1 D),INHALATION
     Route: 055
     Dates: start: 20130402, end: 2013

REACTIONS (4)
  - Death [None]
  - Left ventricular failure [None]
  - Respiratory failure [None]
  - Acute myocardial infarction [None]
